FAERS Safety Report 19597291 (Version 2)
Quarter: 2021Q3

REPORT INFORMATION
  Report Type: Report from Study
  Country: None (occurrence: CA)
  Receive Date: 20210722
  Receipt Date: 20210813
  Transmission Date: 20211014
  Serious: Yes (Death, Other)
  Sender: FDA-Public Use
  Company Number: CA-ABBVIE-21K-028-4003698-00

PATIENT
  Sex: Female

DRUGS (1)
  1. SKYRIZI [Suspect]
     Active Substance: RISANKIZUMAB-RZAA
     Indication: PSORIASIS
     Route: 058
     Dates: start: 20190717

REACTIONS (3)
  - Respiratory disorder [Not Recovered/Not Resolved]
  - Neoplasm malignant [Fatal]
  - Thyroid cancer metastatic [Fatal]

NARRATIVE: CASE EVENT DATE: 2021
